FAERS Safety Report 17060584 (Version 1)
Quarter: 2019Q4

REPORT INFORMATION
  Report Type: Spontaneous
  Country: US (occurrence: US)
  Receive Date: 20191121
  Receipt Date: 20191121
  Transmission Date: 20200122
  Serious: No
  Sender: FDA-Public Use
  Company Number: US-ASTRAZENECA-2019SF53311

PATIENT
  Sex: Female
  Weight: 55.3 kg

DRUGS (2)
  1. CALQUENCE [Suspect]
     Active Substance: ACALABRUTINIB
     Indication: MANTLE CELL LYMPHOMA
     Route: 048
     Dates: start: 201909
  2. TAGAMET [Concomitant]
     Active Substance: CIMETIDINE

REACTIONS (10)
  - Contusion [Unknown]
  - Bronchitis [Unknown]
  - Feeling abnormal [Recovering/Resolving]
  - Weight decreased [Unknown]
  - Diarrhoea [Unknown]
  - Pigmentation disorder [Unknown]
  - Headache [Unknown]
  - Nasopharyngitis [Unknown]
  - Gastritis [Unknown]
  - Gastric disorder [Unknown]
